FAERS Safety Report 6967453-6 (Version None)
Quarter: 2010Q3

REPORT INFORMATION
  Report Type: 
  Country: None (occurrence: None)
  Receive Date: 20100907
  Receipt Date: 20100826
  Transmission Date: 20110219
  Serious: Yes (Hospitalization)
  Sender: FDA-Public Use
  Company Number: JP-ASTRAZENECA-2010SE30774

PATIENT
  Age: 80 Year
  Sex: Male
  Weight: 43 kg

DRUGS (14)
  1. OMEPRAL [Suspect]
     Indication: REFLUX OESOPHAGITIS
     Route: 048
     Dates: start: 20080101, end: 20100616
  2. THYRADIN S [Concomitant]
     Indication: HYPOTHYROIDISM
     Route: 048
     Dates: end: 20100616
  3. BASEN OD [Concomitant]
     Indication: DIABETES MELLITUS
     Route: 048
     Dates: end: 20100616
  4. VANCOMIC [Concomitant]
     Route: 048
     Dates: end: 20100616
  5. RIMATIL [Concomitant]
     Indication: RHEUMATOID ARTHRITIS
     Route: 048
     Dates: end: 20100616
  6. ISCOTIN [Concomitant]
     Indication: RHEUMATOID ARTHRITIS
     Route: 048
     Dates: end: 20100616
  7. RHEUMATREX [Concomitant]
     Indication: RHEUMATOID ARTHRITIS
     Route: 048
     Dates: end: 20100616
  8. DILAZEP HYDROCHLORIDE [Concomitant]
     Indication: ANGINA PECTORIS
     Route: 048
     Dates: end: 20100616
  9. NU-LOTAN [Concomitant]
     Indication: HYPERTENSION
     Route: 048
     Dates: end: 20100616
  10. LUPRAC [Concomitant]
     Indication: HYPERTENSION
     Route: 048
     Dates: end: 20100616
  11. UBIDECARENONE [Concomitant]
     Indication: CARDIAC FAILURE CHRONIC
     Route: 048
     Dates: end: 20100616
  12. LASIX [Concomitant]
     Indication: CARDIAC FAILURE CHRONIC
     Route: 048
  13. RIVOTRIL [Concomitant]
     Indication: PARKINSON'S DISEASE
     Route: 048
  14. LEPRINTON [Concomitant]
     Indication: PARKINSON'S DISEASE
     Route: 048

REACTIONS (1)
  - LONG QT SYNDROME [None]
